FAERS Safety Report 22272608 (Version 2)
Quarter: 2023Q2

REPORT INFORMATION
  Report Type: Report from Study
  Country: US (occurrence: US)
  Receive Date: 20230502
  Receipt Date: 20230512
  Transmission Date: 20230721
  Serious: No
  Sender: FDA-Public Use
  Company Number: US-BRISTOL-MYERS SQUIBB COMPANY-2023-061383

PATIENT
  Age: 25 Year
  Sex: Female
  Weight: 104.33 kg

DRUGS (5)
  1. SOTYKTU [Suspect]
     Active Substance: DEUCRAVACITINIB
     Indication: Psoriasis
     Route: 048
     Dates: start: 20230301
  2. SOTYKTU [Suspect]
     Active Substance: DEUCRAVACITINIB
     Indication: Guttate psoriasis
  3. ALLEGRA D 12HR [Concomitant]
     Indication: Product used for unknown indication
  4. VITAMINS [Concomitant]
     Active Substance: VITAMINS
     Indication: Product used for unknown indication
  5. CHOLECALCIFEROL [Concomitant]
     Active Substance: CHOLECALCIFEROL
     Indication: Product used for unknown indication

REACTIONS (5)
  - Condition aggravated [Unknown]
  - Acne [Unknown]
  - Skin plaque [Unknown]
  - Skin discolouration [Unknown]
  - Drug ineffective [Unknown]
